FAERS Safety Report 13671746 (Version 1)
Quarter: 2017Q2

REPORT INFORMATION
  Report Type: Spontaneous
  Country: US (occurrence: US)
  Receive Date: 20170620
  Receipt Date: 20170620
  Transmission Date: 20170830
  Serious: No
  Sender: FDA-Public Use
  Company Number: None

PATIENT
  Sex: Female
  Weight: 73.55 kg

DRUGS (2)
  1. ENBREL [Suspect]
     Active Substance: ETANERCEPT
     Indication: PSORIASIS
     Route: 048
  2. ENBREL [Suspect]
     Active Substance: ETANERCEPT
     Indication: JUVENILE PSORIATIC ARTHRITIS
     Route: 048

REACTIONS (1)
  - Malaise [None]
